FAERS Safety Report 15914579 (Version 1)
Quarter: 2019Q1

REPORT INFORMATION
  Report Type: Spontaneous
  Country: US (occurrence: US)
  Receive Date: 20190114
  Receipt Date: 20190114
  Transmission Date: 20190417
  Serious: Yes (Other)
  Sender: FDA-Public Use
  Company Number: None

PATIENT
  Age: 66 Year
  Sex: Male

DRUGS (15)
  1. XELJANZ [Concomitant]
     Active Substance: TOFACITINIB CITRATE
  2. SPIRIVA RESPIMAT [Concomitant]
     Active Substance: TIOTROPIUM BROMIDE
  3. PERCOCET [Concomitant]
     Active Substance: ACETAMINOPHEN\OXYCODONE HYDROCHLORIDE
  4. AMLODIPINE [Concomitant]
     Active Substance: AMLODIPINE BESYLATE
  5. ATORVASTATIN [Concomitant]
     Active Substance: ATORVASTATIN
  6. LIDOCAINE TOP OINT [Concomitant]
  7. PANTOPRAZOLE [Concomitant]
     Active Substance: PANTOPRAZOLE
  8. METOPROLOL. [Concomitant]
     Active Substance: METOPROLOL
  9. ATROVENT INH SOLN [Concomitant]
  10. PREDNISONE. [Concomitant]
     Active Substance: PREDNISONE
  11. CYMBALTA [Concomitant]
     Active Substance: DULOXETINE HYDROCHLORIDE
  12. ZOFRAN [Concomitant]
     Active Substance: ONDANSETRON HYDROCHLORIDE
  13. SILDENAFIL. [Concomitant]
     Active Substance: SILDENAFIL
  14. LETAIRIS [Suspect]
     Active Substance: AMBRISENTAN
     Indication: HEART DISEASE CONGENITAL
     Route: 048
     Dates: start: 201808, end: 201812
  15. LASIX [Concomitant]
     Active Substance: FUROSEMIDE

REACTIONS (3)
  - Dyspnoea [None]
  - Drug intolerance [None]
  - Swelling [None]

NARRATIVE: CASE EVENT DATE: 20190104
